FAERS Safety Report 7479253-1 (Version None)
Quarter: 2011Q2

REPORT INFORMATION
  Report Type: 
  Country: None (occurrence: None)
  Receive Date: 20110513
  Receipt Date: 20100114
  Transmission Date: 20111010
  Serious: Yes (Death, Hospitalization)
  Sender: FDA-Public Use
  Company Number: Z0002092E

PATIENT
  Sex: Female
  Weight: 62 kg

DRUGS (2)
  1. PEMETREXED [Suspect]
     Indication: NON-SMALL CELL LUNG CANCER
     Dosage: 500MGM2 CYCLIC
     Route: 042
     Dates: start: 20090909
  2. VOTRIENT [Suspect]
     Indication: NON-SMALL CELL LUNG CANCER
     Dosage: 800MG PER DAY
     Route: 048
     Dates: start: 20090909

REACTIONS (3)
  - ABDOMINAL PAIN [None]
  - DISEASE PROGRESSION [None]
  - DYSPNOEA [None]
